FAERS Safety Report 12742023 (Version 11)
Quarter: 2018Q3

REPORT INFORMATION
  Report Type: Spontaneous
  Country: US (occurrence: US)
  Receive Date: 20160914
  Receipt Date: 20180816
  Transmission Date: 20181010
  Serious: Yes (Congenital Anomaly, Other)
  Sender: FDA-Public Use
  Company Number: PHEH2016US023036

PATIENT
  Sex: Female

DRUGS (1)
  1. ZOFRAN [Suspect]
     Active Substance: ONDANSETRON HYDROCHLORIDE
     Indication: FOETAL EXPOSURE DURING PREGNANCY
     Dosage: MOTHER^S DOSE: 8 MG, TID
     Route: 064

REACTIONS (35)
  - Atrial septal defect [Unknown]
  - Left ventricular dysfunction [Unknown]
  - Pulmonary valve incompetence [Unknown]
  - Ear infection [Unknown]
  - Dermatitis diaper [Unknown]
  - Dermatitis atopic [Unknown]
  - Impetigo [Unknown]
  - Fallot^s tetralogy [Unknown]
  - Right ventricular hypertrophy [Unknown]
  - Pleural effusion [Unknown]
  - Gastroenteritis viral [Unknown]
  - Skin papilloma [Unknown]
  - Otitis media acute [Unknown]
  - Pyrexia [Unknown]
  - Asthma [Unknown]
  - Pulmonary valve stenosis congenital [Unknown]
  - Tricuspid valve incompetence [Unknown]
  - Upper respiratory tract infection [Unknown]
  - Bronchitis [Unknown]
  - Rhinorrhoea [Unknown]
  - Rash [Unknown]
  - Right ventricular dysfunction [Unknown]
  - Urinary tract infection [Unknown]
  - Pharyngitis [Unknown]
  - Ventricular septal defect [Unknown]
  - Injury [Unknown]
  - Dysuria [Unknown]
  - Dehydration [Unknown]
  - Foetal exposure during pregnancy [Unknown]
  - Mitral valve incompetence [Unknown]
  - Aortic valve incompetence [Unknown]
  - Vaginal laceration [Unknown]
  - Acute sinusitis [Unknown]
  - Nasal congestion [Unknown]
  - Foreign body in gastrointestinal tract [Unknown]
